FAERS Safety Report 4899396-6 (Version None)
Quarter: 2006Q1

REPORT INFORMATION
  Report Type: 
  Country: None (occurrence: None)
  Receive Date: 20060118
  Receipt Date: 20051003
  Transmission Date: 20060701
  Serious: No
  Sender: FDA-Public Use
  Company Number: 2005001935

PATIENT
  Sex: Male

DRUGS (8)
  1. TARCEVA [Suspect]
     Indication: NON-SMALL CELL LUNG CANCER
     Dosage: 150 MG (QD), ORAL
     Route: 048
     Dates: start: 20050923
  2. WARFARIN SODIUM [Concomitant]
  3. LASIX [Concomitant]
  4. ENALAPRIL MALEATE [Concomitant]
  5. DIGOXIN [Concomitant]
  6. COREG [Concomitant]
  7. POTASSIUM (POTASSIUM) [Concomitant]
  8. PROZAC [Concomitant]

REACTIONS (4)
  - BURNING SENSATION [None]
  - RASH [None]
  - ROSACEA [None]
  - THERMAL BURN [None]
